FAERS Safety Report 18064878 (Version 1)
Quarter: 2020Q3

REPORT INFORMATION
  Report Type: Spontaneous
  Country: US (occurrence: US)
  Receive Date: 20200723
  Receipt Date: 20200723
  Transmission Date: 20201103
  Serious: No
  Sender: FDA-Public Use
  Company Number: None

PATIENT
  Age: 80 Year
  Sex: Male
  Weight: 77 kg

DRUGS (2)
  1. BOSULIF [Suspect]
     Active Substance: BOSUTINIB MONOHYDRATE
     Indication: MYELOID LEUKAEMIA
     Route: 048
     Dates: start: 20200701
  2. SLIMFAST [Concomitant]
     Active Substance: DIETARY SUPPLEMENT

REACTIONS (1)
  - Dysuria [None]

NARRATIVE: CASE EVENT DATE: 20200723
